FAERS Safety Report 10191881 (Version 1)
Quarter: 2014Q2

REPORT INFORMATION
  Report Type: Spontaneous
  Country: US (occurrence: US)
  Receive Date: 20140523
  Receipt Date: 20140523
  Transmission Date: 20141212
  Serious: Yes (Hospitalization)
  Sender: FDA-Public Use
  Company Number: US-GLAXOSMITHKLINE-A1073790A

PATIENT
  Age: 70 Year
  Sex: Male

DRUGS (12)
  1. LOVAZA [Suspect]
     Indication: PRODUCT USED FOR UNKNOWN INDICATION
     Dosage: 4CAP PER DAY
     Route: 048
     Dates: start: 2013
  2. MOBIC [Concomitant]
  3. PRILOSEC [Concomitant]
  4. EFFEXOR [Concomitant]
  5. SYMBICORT [Concomitant]
  6. NORVASC [Concomitant]
  7. AMITRIPTYLINE [Concomitant]
  8. POTASSIUM CHLORIDE [Concomitant]
  9. ANGIOTENSIN II ANTAGONIST [Concomitant]
  10. LIPITOR [Concomitant]
  11. ABILIFY [Concomitant]
  12. PROPRANOLOL [Concomitant]

REACTIONS (6)
  - Castleman^s disease [Recovering/Resolving]
  - Pyrexia [Recovering/Resolving]
  - Heart rate increased [Recovering/Resolving]
  - Mental disorder [Recovering/Resolving]
  - Incoherent [Recovering/Resolving]
  - Gallbladder operation [Recovering/Resolving]
